FAERS Safety Report 17683223 (Version 1)
Quarter: 2020Q2

REPORT INFORMATION
  Report Type: Spontaneous
  Country: FR (occurrence: FR)
  Receive Date: 20200420
  Receipt Date: 20200420
  Transmission Date: 20200714
  Serious: Yes (Other)
  Sender: FDA-Public Use
  Company Number: FR-DRREDDYS-GER/FRA/20/0122004

PATIENT
  Age: 77 Year
  Sex: Female
  Weight: 124 kg

DRUGS (1)
  1. DAPTOMYCIN. [Suspect]
     Active Substance: DAPTOMYCIN
     Indication: ERYSIPELAS
     Route: 042
     Dates: start: 20200224, end: 20200302

REACTIONS (2)
  - Confusional state [Recovering/Resolving]
  - Hallucination, visual [Recovering/Resolving]

NARRATIVE: CASE EVENT DATE: 20200228
